FAERS Safety Report 11008018 (Version 1)
Quarter: 2015Q2

REPORT INFORMATION
  Report Type: Spontaneous
  Country: US (occurrence: US)
  Receive Date: 20150410
  Receipt Date: 20150410
  Transmission Date: 20150821
  Serious: No
  Sender: FDA-Public Use
  Company Number: US-BRISTOL-MYERS SQUIBB COMPANY-BMS-2015-020670

PATIENT
  Sex: Female

DRUGS (1)
  1. ABILIFY [Suspect]
     Active Substance: ARIPIPRAZOLE
     Indication: TRISOMY 21
     Dosage: 5 MG, UNK
     Route: 065

REACTIONS (4)
  - Product physical issue [Unknown]
  - Abnormal behaviour [Unknown]
  - Weight increased [Unknown]
  - Drug ineffective [Unknown]
